FAERS Safety Report 8322361-3 (Version None)
Quarter: 2012Q2

REPORT INFORMATION
  Report Type: 
  Country: None (occurrence: None)
  Receive Date: 20120430
  Receipt Date: 20120420
  Transmission Date: 20120825
  Serious: Yes (Other)
  Sender: FDA-Public Use
  Company Number: JP-VERTEX PHARMACEUTICALS INC.-AE-2012-005076

PATIENT
  Age: 62 Year
  Sex: Male

DRUGS (16)
  1. REBETOL [Concomitant]
     Route: 048
     Dates: start: 20120411
  2. FAMOTIDINE [Concomitant]
     Route: 048
     Dates: start: 20120207
  3. REBETOL [Concomitant]
     Route: 048
     Dates: start: 20120227, end: 20120327
  4. ALLOPURINOL [Concomitant]
     Route: 048
     Dates: start: 20120220
  5. LOXONIN [Concomitant]
     Route: 048
     Dates: start: 20120207
  6. PEGINTERFERON [Concomitant]
     Route: 051
     Dates: start: 20120227, end: 20120313
  7. PEGINTERFERON [Concomitant]
     Route: 051
     Dates: start: 20120328, end: 20120403
  8. REBETOL [Concomitant]
     Route: 048
     Dates: start: 20120328, end: 20120403
  9. TELAVIC (TELAPREVIR) [Suspect]
     Indication: HEPATITIS C
     Route: 048
     Dates: start: 20120207, end: 20120403
  10. REBETOL [Concomitant]
     Indication: HEPATITIS C
     Route: 048
     Dates: start: 20120207, end: 20120226
  11. TELAVIC (TELAPREVIR) [Suspect]
     Route: 048
     Dates: start: 20120418
  12. PEGINTERFERON [Concomitant]
     Route: 051
     Dates: start: 20120411
  13. PEGINTERFERON [Concomitant]
     Indication: HEPATITIS C
     Route: 051
     Dates: start: 20120207, end: 20120226
  14. PEGINTERFERON [Concomitant]
     Route: 051
     Dates: start: 20120314, end: 20120320
  15. PEGINTERFERON [Concomitant]
     Route: 051
     Dates: start: 20120321, end: 20120327
  16. CELESTAMINE TAB [Concomitant]
     Route: 048
     Dates: start: 20120207

REACTIONS (2)
  - DRUG ERUPTION [None]
  - RASH [None]
